FAERS Safety Report 13138559 (Version 1)
Quarter: 2017Q1

REPORT INFORMATION
  Report Type: Spontaneous
  Country: US (occurrence: US)
  Receive Date: 20170123
  Receipt Date: 20170123
  Transmission Date: 20170428
  Serious: Yes (Life-Threatening, Other)
  Sender: FDA-Public Use
  Company Number: None

PATIENT
  Age: 64 Year
  Sex: Female
  Weight: 53.57 kg

DRUGS (5)
  1. VITAMIN [Concomitant]
     Active Substance: VITAMINS
  2. CALCIUM [Concomitant]
     Active Substance: CALCIUM
  3. VIACTIV CALCIUM (PLUS D) [Concomitant]
  4. SMZ/TMP DS 800-160 TAB AMN (GENERIC FOR ^BACTRIM^ [Suspect]
     Active Substance: SULFAMETHOXAZOLE\TRIMETHOPRIM
     Indication: LOCALISED INFECTION
     Dosage: 800-160 TAB 1 PILL PER USE 2 TIMES A DAY BY MOUTH
     Route: 048
     Dates: start: 20161230, end: 20161231
  5. MULTIPLE VITAMIN (ONE-A-DAY) [Concomitant]

REACTIONS (12)
  - Oropharyngeal pain [None]
  - Decreased appetite [None]
  - Oral pain [None]
  - Fatigue [None]
  - Back pain [None]
  - Rash [None]
  - Ocular hyperaemia [None]
  - Nausea [None]
  - Chills [None]
  - Swelling face [None]
  - Asthenia [None]
  - Pain [None]

NARRATIVE: CASE EVENT DATE: 20161231
